FAERS Safety Report 5694170-5 (Version None)
Quarter: 2008Q2

REPORT INFORMATION
  Report Type: 
  Country: None (occurrence: None)
  Receive Date: 20080402
  Receipt Date: 20080320
  Transmission Date: 20081010
  Serious: Yes (Other)
  Sender: FDA-Public Use
  Company Number: 2008-GWUS-0196

PATIENT
  Age: 64 Year
  Sex: Female
  Weight: 57.1532 kg

DRUGS (1)
  1. ALDARA [Suspect]
     Indication: ACTINIC KERATOSIS
     Dosage: APPLICATION - QD - TOPICAL
     Route: 061
     Dates: start: 20080129, end: 20080213

REACTIONS (11)
  - ERYTHEMA [None]
  - EYE OEDEMA [None]
  - GAIT DISTURBANCE [None]
  - HEADACHE [None]
  - INFLAMMATION [None]
  - INFLUENZA LIKE ILLNESS [None]
  - LIP OEDEMA [None]
  - PRURITUS [None]
  - SCAB [None]
  - SKIN EROSION [None]
  - VERTIGO [None]
